FAERS Safety Report 7898855-1 (Version None)
Quarter: 2011Q4

REPORT INFORMATION
  Report Type: 
  Country: None (occurrence: None)
  Receive Date: 20111107
  Receipt Date: 20111101
  Transmission Date: 20120403
  Serious: Yes (Death, Disabling, Other)
  Sender: FDA-Public Use
  Company Number: US-ASTRAZENECA-2011SE39375

PATIENT
  Age: 71 Year
  Sex: Female

DRUGS (2)
  1. CRESTOR [Suspect]
     Route: 048
  2. TOPROL-XL [Suspect]
     Route: 048

REACTIONS (4)
  - DEATH [None]
  - MONOPARESIS [None]
  - DISABILITY [None]
  - CEREBROVASCULAR ACCIDENT [None]
